FAERS Safety Report 8728051 (Version 2)
Quarter: 2012Q4

REPORT INFORMATION
  Report Type: 
  Country: US (occurrence: US)
  Receive Date: 20120817
  Receipt Date: 20120910
  Transmission Date: 20130627
  Serious: Yes (Other)
  Sender: FDA-Public Use
  Company Number: US-AMGEN-USASP2012051359

PATIENT
  Age: 63 Year
  Sex: Female
  Weight: 62.04 kg

DRUGS (3)
  1. NPLATE [Suspect]
     Indication: IDIOPATHIC THROMBOCYTOPENIC PURPURA
     Dosage: 250 mug, qwk
     Route: 058
     Dates: start: 20100920, end: 20120620
  2. HERCEPTIN [Concomitant]
     Indication: BREAST CANCER METASTATIC
  3. AREDIA [Concomitant]
     Indication: BREAST CANCER
     Dosage: 90 mg, q6mo
     Route: 042
     Dates: start: 20100920, end: 20120321

REACTIONS (1)
  - Chronic myelomonocytic leukaemia [Not Recovered/Not Resolved]
